FAERS Safety Report 7628822-4 (Version None)
Quarter: 2011Q3

REPORT INFORMATION
  Report Type: 
  Country: None (occurrence: None)
  Receive Date: 20110715
  Receipt Date: 20110701
  Transmission Date: 20111222
  Serious: No
  Sender: FDA-Public Use
  Company Number: LTI2011A00190

PATIENT
  Sex: Male

DRUGS (2)
  1. LANSOPRAZOLE [Suspect]
     Indication: HIATUS HERNIA
     Dosage: 30 MG (30 MG, 1 IN 1 D), ORAL, 30 MG (30 MG, 1 IN 1 D), ORAL, ORAL, SEVERAL YEARS
     Route: 048
     Dates: end: 20110101
  2. LANSOPRAZOLE [Suspect]
     Indication: HIATUS HERNIA
     Dosage: 30 MG (30 MG, 1 IN 1 D), ORAL, 30 MG (30 MG, 1 IN 1 D), ORAL, ORAL, SEVERAL YEARS
     Route: 048
     Dates: start: 20110101

REACTIONS (1)
  - VISUAL IMPAIRMENT [None]
